FAERS Safety Report 5884424-1 (Version None)
Quarter: 2008Q3

REPORT INFORMATION
  Report Type: 
  Country: None (occurrence: None)
  Receive Date: 20080915
  Receipt Date: 20080903
  Transmission Date: 20090109
  Serious: Yes (Other)
  Sender: FDA-Public Use
  Company Number: AR-PFIZER INC-2008074320

PATIENT
  Age: 63 Year
  Sex: Male

DRUGS (1)
  1. SUTENT [Suspect]
     Indication: RENAL CANCER
     Dosage: DAILY DOSE:37.5MG-FREQ:4WEEK +2REST

REACTIONS (3)
  - DRUG WITHDRAWAL SYNDROME [None]
  - PLEURAL EFFUSION [None]
  - PYREXIA [None]
